FAERS Safety Report 7650412-8 (Version None)
Quarter: 2011Q3

REPORT INFORMATION
  Report Type: 
  Country: None (occurrence: None)
  Receive Date: 20110802
  Receipt Date: 20110712
  Transmission Date: 20111222
  Serious: Yes (Hospitalization)
  Sender: FDA-Public Use
  Company Number: US-GLAXOSMITHKLINE-A0866438A

PATIENT
  Sex: Female
  Weight: 66.8 kg

DRUGS (9)
  1. SOMA [Concomitant]
  2. CRESTOR [Concomitant]
  3. AMIODARONE HCL [Concomitant]
  4. ENALAPRIL MALEATE [Concomitant]
  5. HYDROCHLOROTHIAZIDE [Concomitant]
  6. AVANDIA [Suspect]
     Indication: DIABETES MELLITUS
     Dosage: 8MG PER DAY
     Route: 048
     Dates: start: 20050627, end: 20080707
  7. ISOSORBIDE DINITRATE [Concomitant]
  8. TRAMADOL HCL [Concomitant]
  9. COUMADIN [Concomitant]

REACTIONS (4)
  - CEREBROVASCULAR ACCIDENT [None]
  - CARDIAC FAILURE CONGESTIVE [None]
  - CORONARY ARTERY DISEASE [None]
  - TRANSIENT ISCHAEMIC ATTACK [None]
